FAERS Safety Report 9619661 (Version 1)
Quarter: 2013Q4

REPORT INFORMATION
  Report Type: Spontaneous
  Country: FR (occurrence: FR)
  Receive Date: 20131014
  Receipt Date: 20131014
  Transmission Date: 20140711
  Serious: Yes (Hospitalization)
  Sender: FDA-Public Use
  Company Number: FR-PFIZER INC-2013291013

PATIENT
  Age: 80 Year
  Sex: Male

DRUGS (10)
  1. TRIATEC [Suspect]
     Indication: HYPERTENSION
     Dosage: UNK
     Route: 065
     Dates: start: 20130530, end: 201307
  2. TRIATEC [Suspect]
     Dosage: UNK
     Route: 065
     Dates: start: 201307, end: 20130727
  3. HYDREA [Suspect]
     Indication: THROMBOCYTOPENIA
     Dosage: 500 MG, DAILY
     Route: 048
     Dates: start: 201210, end: 20130526
  4. HYDREA [Suspect]
     Dosage: 1000 MG, DAILY
     Route: 048
     Dates: start: 20130527, end: 20130727
  5. LUCENTIS [Suspect]
     Dosage: FOR MDAR
     Route: 065
     Dates: start: 201209
  6. LOXEN LP [Concomitant]
     Dosage: UNK
     Dates: start: 20130503, end: 20130530
  7. APROVEL [Concomitant]
     Dosage: UNK
     Dates: start: 20130727, end: 20130827
  8. AMLOR [Concomitant]
     Indication: HYPERTENSION
     Dosage: UNK
     Dates: start: 20130827, end: 20130905
  9. KARDEGIC [Concomitant]
     Dosage: UNK
  10. XATRAL LP [Concomitant]
     Indication: BENIGN PROSTATIC HYPERPLASIA
     Dosage: UNK

REACTIONS (2)
  - Pruritus generalised [Recovering/Resolving]
  - Rash maculo-papular [Recovering/Resolving]
